FAERS Safety Report 24971742 (Version 1)
Quarter: 2025Q1

REPORT INFORMATION
  Report Type: Spontaneous
  Country: CN (occurrence: CN)
  Receive Date: 20250214
  Receipt Date: 20250214
  Transmission Date: 20250408
  Serious: Yes (Other)
  Sender: PFIZER
  Company Number: CN-TAKEDA-2025TUS014284

PATIENT
  Age: 54 Year
  Sex: Female
  Weight: 56 kg

DRUGS (6)
  1. BRENTUXIMAB VEDOTIN [Suspect]
     Active Substance: BRENTUXIMAB VEDOTIN
     Indication: Hodgkin^s disease mixed cellularity stage unspecified
     Dosage: 50 MILLIGRAM, QD
     Route: 041
     Dates: start: 20231228, end: 20231228
  2. DOXORUBICIN HYDROCHLORIDE [Suspect]
     Active Substance: DOXORUBICIN HYDROCHLORIDE
     Indication: Hodgkin^s disease mixed cellularity stage unspecified
     Dosage: 40 MILLIGRAM, QD
     Route: 041
     Dates: start: 20231228, end: 20231228
  3. VINDESINE SULFATE [Suspect]
     Active Substance: VINDESINE SULFATE
     Indication: Hodgkin^s disease mixed cellularity stage unspecified
     Dosage: 4 MILLIGRAM, QD
     Route: 042
     Dates: start: 20231228, end: 20231228
  4. SODIUM CHLORIDE [Concomitant]
     Active Substance: SODIUM CHLORIDE
     Dosage: 40 MILLILITER, QD
     Route: 042
     Dates: start: 20231228, end: 20231228
  5. SODIUM CHLORIDE [Concomitant]
     Active Substance: SODIUM CHLORIDE
     Dosage: 150 MILLILITER, QD
     Route: 041
     Dates: start: 20231228, end: 20231228
  6. DEXTROSE [Concomitant]
     Active Substance: DEXTROSE MONOHYDRATE
     Dosage: 250 MILLIGRAM, QD
     Route: 041
     Dates: start: 20231228, end: 20231228

REACTIONS (2)
  - White blood cell count decreased [Recovering/Resolving]
  - Neutrophil count decreased [Recovering/Resolving]

NARRATIVE: CASE EVENT DATE: 20240104
